FAERS Safety Report 18423847 (Version 2)
Quarter: 2020Q4

REPORT INFORMATION
  Report Type: Spontaneous
  Country: US (occurrence: US)
  Receive Date: 20201024
  Receipt Date: 20201103
  Transmission Date: 20210114
  Serious: No
  Sender: FDA-Public Use
  Company Number: US-009507513-2010USA006108

PATIENT
  Age: 56 Year
  Sex: Male

DRUGS (7)
  1. ONIVYDE [Concomitant]
     Active Substance: IRINOTECAN HYDROCHLORIDE
     Dosage: CYCLE 2
     Dates: start: 20200819
  2. EMEND [Suspect]
     Active Substance: APREPITANT
     Dosage: UNK
  3. ONIVYDE [Concomitant]
     Active Substance: IRINOTECAN HYDROCHLORIDE
     Indication: PANCREATIC CARCINOMA METASTATIC
     Dosage: CYCLE 1
     Dates: start: 20200805
  4. DECADRON [Suspect]
     Active Substance: DEXAMETHASONE
     Route: 048
  5. FLUOROURACIL. [Concomitant]
     Active Substance: FLUOROURACIL
     Indication: PANCREATIC CARCINOMA METASTATIC
     Dosage: UNK
     Dates: start: 20200805
  6. LEUCOVORIN. [Concomitant]
     Active Substance: LEUCOVORIN
     Indication: PANCREATIC CARCINOMA METASTATIC
     Dosage: UNK
     Dates: start: 20200805
  7. ATROPINE. [Suspect]
     Active Substance: ATROPINE

REACTIONS (3)
  - Dizziness [Unknown]
  - Nausea [Unknown]
  - Headache [Unknown]

NARRATIVE: CASE EVENT DATE: 20200902
